FAERS Safety Report 25641326 (Version 1)
Quarter: 2025Q3

REPORT INFORMATION
  Report Type: Report from Study
  Country: GB (occurrence: GB)
  Receive Date: 20250804
  Receipt Date: 20250804
  Transmission Date: 20251021
  Serious: Yes (Hospitalization)
  Sender: ABBVIE
  Company Number: GB-ABBVIE-6398157

PATIENT
  Sex: Female

DRUGS (1)
  1. HUMIRA [Suspect]
     Active Substance: ADALIMUMAB
     Indication: Psoriatic arthropathy
     Dosage: FORM STRENGTH - 40MG/0.4ML. DOSE FORM - SOLUTION FOR INJECTION PRE-FILLED PENS 2 PRE-FILLED DISPO...
     Route: 058

REACTIONS (1)
  - Mental disorder [Not Recovered/Not Resolved]
